FAERS Safety Report 16905391 (Version 4)
Quarter: 2019Q4

REPORT INFORMATION
  Report Type: Report from Study
  Country: US (occurrence: US)
  Receive Date: 20191010
  Receipt Date: 20191219
  Transmission Date: 20200122
  Serious: Yes (Life-Threatening, Hospitalization)
  Sender: FDA-Public Use
  Company Number: US-AVEXISPRA-CTR-AVXS12019-0023

PATIENT
  Age: 6 Month
  Sex: Female
  Weight: 8.3 kg

DRUGS (5)
  1. PREDNISONE                         /00044702/ [Concomitant]
     Active Substance: PREDNISONE
     Dosage: UNK
     Dates: start: 20190917
  2. AVXS-101 [Suspect]
     Active Substance: ONASEMNOGENE ABEPARVOVEC
     Indication: SPINAL MUSCULAR ATROPHY
     Dosage: 35.8 MILLILITER (1.1 X 10^14 VG/KG), SINGLE
     Route: 042
     Dates: start: 20190920, end: 20190920
  3. PULMOZYME [Concomitant]
     Active Substance: DORNASE ALFA
  4. ATROVENT [Concomitant]
     Active Substance: IPRATROPIUM BROMIDE
  5. PREDNISOLONE. [Concomitant]
     Active Substance: PREDNISOLONE
     Indication: PROPHYLAXIS

REACTIONS (9)
  - Anaemia [Not Recovered/Not Resolved]
  - Thrombocytopenia [Not Recovered/Not Resolved]
  - Leukocytosis [Not Recovered/Not Resolved]
  - Pasteurella infection [Not Recovered/Not Resolved]
  - Haemolytic uraemic syndrome [Not Recovered/Not Resolved]
  - Hypertension [Not Recovered/Not Resolved]
  - Renal failure [Not Recovered/Not Resolved]
  - Thrombotic microangiopathy [Not Recovered/Not Resolved]
  - Pneumonia acinetobacter [Not Recovered/Not Resolved]

NARRATIVE: CASE EVENT DATE: 20190923
